FAERS Safety Report 11113902 (Version 2)
Quarter: 2015Q2

REPORT INFORMATION
  Report Type: Spontaneous
  Country: US (occurrence: US)
  Receive Date: 20150514
  Receipt Date: 20150519
  Transmission Date: 20150821
  Serious: Yes (Other)
  Sender: FDA-Public Use
  Company Number: CHPA2015US006145

PATIENT
  Sex: Female

DRUGS (1)
  1. PERDIEM [Suspect]
     Active Substance: SENNOSIDES
     Indication: CONSTIPATION
     Dosage: UNK, QD
     Route: 048

REACTIONS (2)
  - Drug dependence [Unknown]
  - Intentional product use issue [Unknown]
